FAERS Safety Report 10075436 (Version 3)
Quarter: 2014Q2

REPORT INFORMATION
  Report Type: Spontaneous
  Country: US (occurrence: None)
  Receive Date: 20140318
  Receipt Date: 20140515
  Transmission Date: 20141212
  Serious: Yes (Other)
  Sender: FDA-Public Use
  Company Number: ADR-2013-01665

PATIENT
  Age: 51 Year
  Sex: Female

DRUGS (2)
  1. COMPOUNDED BACLOFEN [Suspect]
     Indication: MUSCLE SPASTICITY
  2. SALINE [Suspect]

REACTIONS (17)
  - Weight increased [None]
  - Abdominal distension [None]
  - Implant site pain [None]
  - Musculoskeletal chest pain [None]
  - Sensory disturbance [None]
  - No therapeutic response [None]
  - Sleep apnoea syndrome [None]
  - Narcolepsy [None]
  - Medical device complication [None]
  - Immobile [None]
  - Wheelchair user [None]
  - Muscle contractions involuntary [None]
  - Muscle spasticity [None]
  - Device breakage [None]
  - Device dislocation [None]
  - Refusal of treatment by patient [None]
  - Device physical property issue [None]
